FAERS Safety Report 12257435 (Version 1)
Quarter: 2016Q2

REPORT INFORMATION
  Report Type: Spontaneous
  Country: US (occurrence: US)
  Receive Date: 20160412
  Receipt Date: 20160412
  Transmission Date: 20160815
  Serious: Yes (Death, Other)
  Sender: FDA-Public Use
  Company Number: US-TAKEDA-TPA2013A01113

PATIENT

DRUGS (3)
  1. ACTOS [Suspect]
     Active Substance: PIOGLITAZONE HYDROCHLORIDE
     Indication: TYPE 2 DIABETES MELLITUS
     Dosage: 45 MG, UNK
     Route: 048
     Dates: start: 200910, end: 201102
  2. GLUCOTROL [Concomitant]
     Active Substance: GLIPIZIDE
     Dosage: 5 MG, UNK
     Dates: start: 2009
  3. METFORMIN [Concomitant]
     Active Substance: METFORMIN HYDROCHLORIDE
     Dosage: 250 MG, BID
     Dates: start: 2010

REACTIONS (7)
  - Death [Fatal]
  - Pollakiuria [Unknown]
  - Abdominal distension [Unknown]
  - Dysuria [Unknown]
  - Abdominal discomfort [Unknown]
  - Bladder cancer [Unknown]
  - Constipation [Unknown]

NARRATIVE: CASE EVENT DATE: 2011
